FAERS Safety Report 5001026-X (Version None)
Quarter: 2006Q2

REPORT INFORMATION
  Report Type: 
  Country: None (occurrence: None)
  Receive Date: 20060512
  Receipt Date: 20060510
  Transmission Date: 20061013
  Serious: Yes (Death)
  Sender: FDA-Public Use
  Company Number: A-US2004-08557

PATIENT
  Age: 61 Year
  Sex: Female
  Weight: 54.9 kg

DRUGS (9)
  1. FLOLAN [Suspect]
     Indication: PULMONARY HYPERTENSION
     Route: 042
  2. TRACLEER [Suspect]
     Indication: PULMONARY HYPERTENSION
     Dosage: 125MG TWICE PER DAY
     Route: 048
     Dates: start: 20040830, end: 20041120
  3. DEMADEX [Concomitant]
  4. PREDNISONE TAB [Concomitant]
  5. COUMADIN [Concomitant]
  6. VIAGRA [Concomitant]
  7. ALLEGRA [Concomitant]
  8. ELAVIL [Concomitant]
  9. OXYCONTIN [Concomitant]

REACTIONS (2)
  - HYPERSENSITIVITY [None]
  - PULMONARY HYPERTENSION [None]
